FAERS Safety Report 7817424 (Version 2)
Quarter: 2013Q3

REPORT INFORMATION
  Report Type: Spontaneous
  Country: US (occurrence: US)
  Receive Date: 20110217
  Receipt Date: 20130808
  Transmission Date: 20140515
  Serious: Yes (Hospitalization)
  Sender: FDA-Public Use
  Company Number: US-B.I. PHARMACEUTICALS,INC./RIDGEFIELD-2010-BP-13726BP

PATIENT
  Age: 84 Year
  Sex: Female

DRUGS (9)
  1. PRADAXA [Suspect]
     Indication: ATRIAL FIBRILLATION
     Dosage: 300 MG
     Route: 048
     Dates: start: 20101125, end: 20101127
  2. PRADAXA [Suspect]
     Indication: ANTICOAGULANT THERAPY
  3. PLAVIX [Concomitant]
     Indication: CARDIAC DISORDER
     Dosage: 75 MG
     Route: 048
     Dates: start: 2003
  4. PROTONIX [Concomitant]
     Indication: CARDIAC DISORDER
     Dosage: 40 MG
     Route: 048
     Dates: start: 2008
  5. BUMETANIDE [Concomitant]
     Indication: DIURETIC THERAPY
     Route: 048
  6. MULTAQ [Concomitant]
     Indication: ANTICOAGULANT THERAPY
     Dosage: 800 MG
     Route: 048
     Dates: start: 2008
  7. POTASSIUM [Concomitant]
  8. FLAGYL [Concomitant]
  9. LEVOTHROID [Concomitant]

REACTIONS (8)
  - Rectal haemorrhage [Recovered/Resolved]
  - Cerebrovascular accident [Unknown]
  - Hypoaesthesia [Unknown]
  - Cardiac disorder [Unknown]
  - Haematochezia [Recovered/Resolved]
  - Diarrhoea haemorrhagic [Recovered/Resolved]
  - Faeces discoloured [Not Recovered/Not Resolved]
  - Melaena [Not Recovered/Not Resolved]
